FAERS Safety Report 8792398 (Version 1)
Quarter: 2012Q4

REPORT INFORMATION
  Report Type: 
  Country: BR (occurrence: CO)
  Receive Date: 20120918
  Receipt Date: 20120918
  Transmission Date: 20130627
  Serious: Yes (Other)
  Sender: FDA-Public Use
  Company Number: PHHY2012CO065279

PATIENT
  Sex: Male

DRUGS (1)
  1. TEGRETOL [Suspect]
     Indication: EPILEPSY
     Dosage: 100 ml, TID
     Route: 048
     Dates: start: 201204

REACTIONS (2)
  - Somnolence [Recovered/Resolved]
  - Convulsion [Recovering/Resolving]
